FAERS Safety Report 20075483 (Version 1)
Quarter: 2021Q4

REPORT INFORMATION
  Report Type: Spontaneous
  Country: None (occurrence: US)
  Receive Date: 20211116
  Receipt Date: 20211116
  Transmission Date: 20220303
  Serious: No
  Sender: FDA-Public Use
  Company Number: US-Nephron Sterile Compounding Center-2121916

PATIENT
  Age: 56 Year
  Sex: Male
  Weight: 123.88 kg

DRUGS (11)
  1. SUCCINYLCHOLINE CHLORIDE [Suspect]
     Active Substance: SUCCINYLCHOLINE CHLORIDE
     Indication: Paralysis
     Route: 042
     Dates: start: 20211029, end: 20211029
  2. AMIDATE(TM) ETOMIDATE [Concomitant]
     Active Substance: ETOMIDATE
     Dates: start: 20211029, end: 20211029
  3. DEXMEDETOMIDINE [Concomitant]
     Active Substance: DEXMEDETOMIDINE
     Route: 042
     Dates: start: 20211029, end: 20211029
  4. KETOROLAC [Concomitant]
     Active Substance: KETOROLAC TROMETHAMINE
     Dates: start: 20211029, end: 20211029
  5. TYLENOL [Concomitant]
     Active Substance: ACETAMINOPHEN
     Route: 048
     Dates: start: 20211029, end: 20211029
  6. DULOXETINE [Concomitant]
     Active Substance: DULOXETINE
     Route: 048
  7. BUPROPION [Concomitant]
     Active Substance: BUPROPION
     Route: 048
  8. TRAZODONE [Concomitant]
     Active Substance: TRAZODONE HYDROCHLORIDE
     Route: 048
  9. CYCLOBENZAPRINE [Concomitant]
     Active Substance: CYCLOBENZAPRINE
     Route: 048
  10. LORATADINE [Concomitant]
     Active Substance: LORATADINE
     Route: 048
  11. GABAPENTIN [Concomitant]
     Active Substance: GABAPENTIN
     Route: 048

REACTIONS (1)
  - Drug ineffective [Recovered/Resolved]

NARRATIVE: CASE EVENT DATE: 20211029
